FAERS Safety Report 5317894-8 (Version None)
Quarter: 2007Q2

REPORT INFORMATION
  Report Type: 
  Country: None (occurrence: None)
  Receive Date: 20070507
  Receipt Date: 20070503
  Transmission Date: 20071010
  Serious: Yes (Hospitalization)
  Sender: FDA-Public Use
  Company Number: A0647993A

PATIENT
  Age: 43 Year
  Sex: Male
  Weight: 121.4 kg

DRUGS (3)
  1. LAMICTAL [Suspect]
     Indication: BIPOLAR DISORDER
     Route: 048
     Dates: start: 20050901, end: 20070403
  2. LEXAPRO [Concomitant]
  3. WELLBUTRIN XL [Concomitant]

REACTIONS (5)
  - BLISTER [None]
  - NASAL DISCOMFORT [None]
  - NASAL INFLAMMATION [None]
  - RHINITIS [None]
  - SINUS DISORDER [None]
